FAERS Safety Report 21045748 (Version 2)
Quarter: 2022Q3

REPORT INFORMATION
  Report Type: Spontaneous
  Country: BR (occurrence: BR)
  Receive Date: 20220706
  Receipt Date: 20220713
  Transmission Date: 20221026
  Serious: Yes (Other)
  Sender: FDA-Public Use
  Company Number: BR-BAYER-2022A092775

PATIENT
  Sex: Female

DRUGS (1)
  1. EYLEA [Suspect]
     Active Substance: AFLIBERCEPT
     Indication: Retinal vein occlusion
     Dosage: UNK (TOTAL OF 4 INJECTIONS IN 1 EYE AND 3 INJECTION IN THE OTHER EYE), SOLUTION FOR INJECTION

REACTIONS (2)
  - Eye inflammation [Recovering/Resolving]
  - Retinal vein occlusion [Unknown]
